FAERS Safety Report 17164076 (Version 2)
Quarter: 2020Q1

REPORT INFORMATION
  Report Type: Report from Study
  Country: JP (occurrence: JP)
  Receive Date: 20191217
  Receipt Date: 20200211
  Transmission Date: 20200409
  Serious: Yes (Hospitalization)
  Sender: FDA-Public Use
  Company Number: JP-ACTELION-A-CH2019-199308

PATIENT
  Age: 1 Year
  Sex: Female
  Weight: 4.9 kg

DRUGS (13)
  1. ALDACTONE A [Concomitant]
     Active Substance: SPIRONOLACTONE
  2. OPSUMIT [Suspect]
     Active Substance: MACITENTAN
     Dosage: 0.7 MG, BID
     Route: 048
     Dates: start: 20180608
  3. LASIX [Concomitant]
     Active Substance: FUROSEMIDE
  4. WINTERMIN [Concomitant]
     Active Substance: CHLORPROMAZINE
  5. OPSUMIT [Suspect]
     Active Substance: MACITENTAN
     Indication: PULMONARY ARTERIAL HYPERTENSION
     Dosage: 1.0 MG, QD
     Route: 048
     Dates: start: 20171121
  6. REVATIO [Concomitant]
     Active Substance: SILDENAFIL CITRATE
  7. ADCIRCA [Concomitant]
     Active Substance: TADALAFIL
  8. OXYGEN. [Concomitant]
     Active Substance: OXYGEN
  9. UPTRAVI [Concomitant]
     Active Substance: SELEXIPAG
  10. BERAPROST [Concomitant]
     Active Substance: BERAPROST
  11. OPSUMIT [Suspect]
     Active Substance: MACITENTAN
     Dosage: 1.3 MG, QD
     Route: 048
     Dates: start: 20171228
  12. OPSUMIT [Suspect]
     Active Substance: MACITENTAN
     Dosage: 0.9 MG, BID
     Route: 048
     Dates: start: 201909
  13. OPSUMIT [Suspect]
     Active Substance: MACITENTAN
     Dosage: 1.0 MG, BID
     Route: 048
     Dates: start: 201911

REACTIONS (2)
  - Bronchitis [Recovering/Resolving]
  - Upper respiratory tract inflammation [Recovering/Resolving]

NARRATIVE: CASE EVENT DATE: 20180525
